FAERS Safety Report 4938493-3 (Version None)
Quarter: 2006Q1

REPORT INFORMATION
  Report Type: 
  Country: None (occurrence: None)
  Receive Date: 20060308
  Receipt Date: 20060308
  Transmission Date: 20060701
  Serious: Yes (Life-Threatening, Hospitalization)
  Sender: FDA-Public Use
  Company Number: None

PATIENT
  Sex: Female
  Weight: 93 kg

DRUGS (3)
  1. BEVACIZUMAB 25 MG/ML GENETECH [Suspect]
     Indication: PERITONEAL CARCINOMA
     Dosage: 1335 MG EVERY 3 WEEKS IV BOLUS
     Route: 040
     Dates: start: 20050706, end: 20060113
  2. BEVACIZUMAB 25 MG/ML GENETECH [Suspect]
     Indication: RECURRENT CANCER
     Dosage: 1335 MG EVERY 3 WEEKS IV BOLUS
     Route: 040
     Dates: start: 20050706, end: 20060113
  3. ENOXAPARIN SODIUM [Suspect]
     Indication: PULMONARY EMBOLISM
     Dosage: 140 MG DAILY SQ
     Route: 058
     Dates: start: 20060117, end: 20060122

REACTIONS (1)
  - SUBARACHNOID HAEMORRHAGE [None]
